FAERS Safety Report 4770933-5 (Version None)
Quarter: 2005Q3

REPORT INFORMATION
  Report Type: 
  Country: None (occurrence: None)
  Receive Date: 20050915
  Receipt Date: 20050728
  Transmission Date: 20060218
  Serious: Yes (Hospitalization)
  Sender: FDA-Public Use
  Company Number: 200512224JP

PATIENT
  Age: 76 Year
  Sex: Male

DRUGS (11)
  1. LASIX [Suspect]
     Route: 048
     Dates: end: 20050524
  2. PANALDIN [Suspect]
     Route: 048
     Dates: end: 20050520
  3. BUFFERIN [Concomitant]
     Route: 048
     Dates: end: 20050520
  4. UBRETID [Concomitant]
     Route: 048
  5. EBRANTIL [Concomitant]
     Route: 048
  6. EPADEL [Concomitant]
     Route: 048
     Dates: end: 20050520
  7. JUVELA NICOTINATE [Concomitant]
     Route: 048
  8. FASTIC [Concomitant]
     Route: 048
  9. WARFARIN [Concomitant]
     Route: 048
  10. PARAMIDIN [Concomitant]
     Route: 048
     Dates: end: 20050520
  11. ARTIST [Concomitant]
     Route: 048

REACTIONS (1)
  - PEMPHIGUS [None]
